FAERS Safety Report 4767654-1 (Version None)
Quarter: 2005Q3

REPORT INFORMATION
  Report Type: 
  Country: None (occurrence: None)
  Receive Date: 20050912
  Receipt Date: 20050829
  Transmission Date: 20060218
  Serious: Yes (Hospitalization, Other)
  Sender: FDA-Public Use
  Company Number: 2005098861

PATIENT
  Age: 48 Year
  Sex: Male

DRUGS (5)
  1. CELEBREX [Suspect]
     Indication: ANKYLOSING SPONDYLITIS
     Dosage: (200 MG,), ORAL
     Route: 048
     Dates: end: 20050629
  2. BUMETANIDE [Suspect]
     Indication: HYPERTENSION
     Dosage: 2 MG (2 MG, 1 IN 1 D), ORAL
     Route: 048
     Dates: start: 20050101
  3. NEXIUM [Concomitant]
  4. SIMVASTATIN [Concomitant]
  5. PLAVIX [Concomitant]

REACTIONS (4)
  - DRUG INTERACTION [None]
  - DYSPHASIA [None]
  - HEMIPLEGIA [None]
  - TRANSIENT ISCHAEMIC ATTACK [None]
